FAERS Safety Report 10700581 (Version 5)
Quarter: 2015Q2

REPORT INFORMATION
  Report Type: Spontaneous
  Country: FR (occurrence: FR)
  Receive Date: 20150109
  Receipt Date: 20150424
  Transmission Date: 20150821
  Serious: Yes (Hospitalization, Other)
  Sender: FDA-Public Use
  Company Number: FR-PFIZER INC-2015003894

PATIENT
  Age: 85 Year
  Sex: Female

DRUGS (7)
  1. SERESTA [Concomitant]
     Active Substance: OXAZEPAM
     Dosage: 10 MG, 1X/DAY
     Route: 048
  2. ALTEIS [Concomitant]
     Active Substance: OLMESARTAN MEDOXOMIL
     Dosage: 20 MG, 1X/DAY
     Route: 048
  3. TRANSILANE [Concomitant]
     Dosage: 1 DF, 1X/DAY
     Route: 048
  4. EFFEXOR [Suspect]
     Active Substance: VENLAFAXINE HYDROCHLORIDE
     Dosage: 37.5 MG, QD
     Route: 048
     Dates: end: 20141111
  5. DOLIPRANE [Concomitant]
     Active Substance: ACETAMINOPHEN
     Dosage: UNK, AS NEEDED
     Route: 048
  6. OGASTORO [Suspect]
     Active Substance: LANSOPRAZOLE
     Dosage: 30 MG, QD
     Route: 048
     Dates: end: 20141111
  7. ARICEPT [Concomitant]
     Active Substance: DONEPEZIL HYDROCHLORIDE
     Dosage: 10 MG, 1X/DAY
     Route: 048

REACTIONS (6)
  - Fall [Recovered/Resolved]
  - Renal failure [Recovered/Resolved]
  - Cystitis escherichia [Recovered/Resolved]
  - General physical health deterioration [Recovered/Resolved]
  - Hyponatraemia [Recovered/Resolved]
  - Abnormal behaviour [Recovered/Resolved]

NARRATIVE: CASE EVENT DATE: 20141111
